FAERS Safety Report 9928653 (Version 1)
Quarter: 2014Q1

REPORT INFORMATION
  Report Type: Spontaneous
  Country: JP (occurrence: JP)
  Receive Date: 20140227
  Receipt Date: 20140227
  Transmission Date: 20141002
  Serious: Yes (Other)
  Sender: FDA-Public Use
  Company Number: JP-TEVA-465625ISR

PATIENT
  Age: 44 Year
  Sex: Male

DRUGS (6)
  1. CISPLATIN [Suspect]
     Indication: MALIGNANT MELANOMA
     Dosage: DAILY DOSE: 600 MG (CUMULATIVE DOSE)
  2. DACARBAZINE [Suspect]
     Indication: MALIGNANT MELANOMA
     Dosage: DAILY DOSE: 5000 MG (CUMULATIVE DOSE)
  3. DACARBAZINE [Suspect]
     Dosage: DAILY DOSE: 4500 MG (CUMULATIVE DOSE)
  4. NIMUSTINE HYDROCHLORIDE [Suspect]
     Indication: MALIGNANT MELANOMA
     Dosage: DAILY DOSE: 500 MG (CUMULATIVE DOSE)
  5. NIMUSTINE HYDROCHLORIDE [Suspect]
     Dosage: DAILY DOSE: 500 MG (CUMULATIVE DOSE)
  6. VINCRISTINE [Suspect]
     Indication: MALIGNANT MELANOMA
     Dosage: DAILY DOSE: 5 MG (CUMULATIVE DOSE)

REACTIONS (2)
  - Second primary malignancy [Unknown]
  - Myelodysplastic syndrome [Unknown]
